FAERS Safety Report 7771244-6 (Version None)
Quarter: 2011Q3

REPORT INFORMATION
  Report Type: 
  Country: None (occurrence: None)
  Receive Date: 20110922
  Receipt Date: 20100818
  Transmission Date: 20111222
  Serious: No
  Sender: FDA-Public Use
  Company Number: US-ASTRAZENECA-2010SE38905

PATIENT
  Sex: Female

DRUGS (5)
  1. NIFEDIPINE [Concomitant]
     Indication: HYPERTENSION
     Dates: end: 20100812
  2. RISPERDAL [Concomitant]
  3. SEROQUEL [Suspect]
     Route: 048
     Dates: start: 20100818
  4. SEROQUEL [Suspect]
     Indication: BIPOLAR DISORDER
     Route: 048
     Dates: start: 20080101, end: 20100817
  5. METFORMIN [Concomitant]
     Indication: DIABETES MELLITUS
     Dates: end: 20100812

REACTIONS (7)
  - ANXIETY [None]
  - STRESS ULCER [None]
  - SELF-INJURIOUS IDEATION [None]
  - WEIGHT INCREASED [None]
  - CHOLELITHIASIS [None]
  - PANIC REACTION [None]
  - WEIGHT DECREASED [None]
